FAERS Safety Report 18241206 (Version 1)
Quarter: 2020Q3

REPORT INFORMATION
  Report Type: Spontaneous
  Country: US (occurrence: US)
  Receive Date: 20200904
  Receipt Date: 20200904
  Transmission Date: 20201103
  Serious: Yes (Hospitalization)
  Sender: FDA-Public Use
  Company Number: None

PATIENT
  Age: 43 Year
  Sex: Male

DRUGS (6)
  1. GABAPENTIN. [Concomitant]
     Active Substance: GABAPENTIN
  2. DAPTOMYCIN. [Concomitant]
     Active Substance: DAPTOMYCIN
  3. BACLOFEN. [Concomitant]
     Active Substance: BACLOFEN
  4. SODIUM CHLORIDE FLUSH [Concomitant]
     Active Substance: SODIUM CHLORIDE
  5. HEPARIN FLUSH [Concomitant]
     Active Substance: HEPARIN SODIUM
  6. CEFEPIME 2 GM APOTEX [Suspect]
     Active Substance: CEFEPIME HYDROCHLORIDE
     Indication: INFECTION
     Route: 042
     Dates: start: 20200730, end: 20200815

REACTIONS (6)
  - Chest discomfort [None]
  - Condition aggravated [None]
  - Hypersensitivity [None]
  - Pyrexia [None]
  - Headache [None]
  - Leukopenia [None]

NARRATIVE: CASE EVENT DATE: 20200815
